FAERS Safety Report 9277061 (Version 2)
Quarter: 2013Q2

REPORT INFORMATION
  Report Type: Report from Study
  Country: US (occurrence: US)
  Receive Date: 20130507
  Receipt Date: 20130511
  Transmission Date: 20140414
  Serious: Yes (Life-Threatening, Hospitalization)
  Sender: FDA-Public Use
  Company Number: US-009507513-1305USA002179

PATIENT
  Age: 14 Month
  Sex: Male
  Weight: 9.61 kg

DRUGS (14)
  1. VORINOSTAT [Suspect]
     Indication: MEDULLOBLASTOMA
     Dosage: 230 MG/M2, QD ON DAYS 1-4
     Route: 048
     Dates: start: 20130304, end: 20130307
  2. VORINOSTAT [Suspect]
     Dosage: 230 MG/M2, QD ON DAYS 1-4
     Route: 048
     Dates: start: 20130329, end: 20130401
  3. ISOTRETINOIN [Suspect]
     Indication: MEDULLOBLASTOMA
     Dosage: 80 MG/M2, BID ON DAYS 1-4
     Route: 048
     Dates: start: 20130304, end: 20130307
  4. ISOTRETINOIN [Suspect]
     Dosage: 80 MG/M2, BID ON DAYS 1-4
     Route: 048
     Dates: start: 20130329
  5. VINCRISTINE [Suspect]
     Indication: MEDULLOBLASTOMA
     Dosage: 0.05 MG/KG, QD ON DAYS 4, 11 AND 18
     Route: 042
     Dates: start: 20130307, end: 20130321
  6. VINCRISTINE [Suspect]
     Dosage: 0.05 MG/KG, QD ON DAYS 4, 11 AND 18
     Route: 042
     Dates: start: 20130401, end: 20130415
  7. CISPLATIN [Suspect]
     Indication: MEDULLOBLASTOMA
     Dosage: 3.5 MG/KG, QD OVER 6 HRS ON DAY 4
     Route: 042
     Dates: start: 20130307, end: 20130307
  8. CISPLATIN [Suspect]
     Dosage: 3.5 MG/KG, QD OVER 6 HRS ON DAY
     Route: 042
     Dates: start: 20130402, end: 20130402
  9. CYCLOPHOSPHAMIDE [Suspect]
     Indication: MEDULLOBLASTOMA
     Dosage: 60 MG/KG, QD OVER 1 HRON DAYS 5 AND 6
     Route: 042
     Dates: start: 20130308, end: 20130309
  10. CYCLOPHOSPHAMIDE [Suspect]
     Dosage: 60 MG/KG, QD OVER 1 HRON DAYS 5 AND 6
     Route: 042
     Dates: start: 20130403, end: 20130404
  11. ETOPOSIDE [Suspect]
     Indication: MEDULLOBLASTOMA
     Dosage: 2.5 MG/KG, QD OVER 1 HR ON DAYS 4, 5 AND 6
     Route: 042
     Dates: start: 20130307, end: 20130309
  12. ETOPOSIDE [Suspect]
     Dosage: 2.5 MG/KG, QD OVER 1 HR ON DAYS 4, 5 AND 6
     Route: 042
     Dates: start: 20130401, end: 20130403
  13. MESNA [Suspect]
     Dosage: UNK MG, UNK
     Dates: end: 20130404
  14. G-CSF [Suspect]
     Indication: MEDULLOBLASTOMA
     Dosage: UNK MICROGRAM, UNK
     Dates: start: 20130429

REACTIONS (6)
  - Sepsis [Recovering/Resolving]
  - Platelet count decreased [Recovering/Resolving]
  - Neutrophil count decreased [Recovering/Resolving]
  - Haemorrhage intracranial [Recovering/Resolving]
  - Anaemia [Recovering/Resolving]
  - Convulsion [Recovering/Resolving]
